FAERS Safety Report 8346223-0 (Version None)
Quarter: 2012Q2

REPORT INFORMATION
  Report Type: 
  Country: None (occurrence: None)
  Receive Date: 20120509
  Receipt Date: 20120501
  Transmission Date: 20120825
  Serious: Yes (Other)
  Sender: FDA-Public Use
  Company Number: US-US-EMD SERONO, INC.-7115855

PATIENT
  Sex: Male
  Weight: 84 kg

DRUGS (8)
  1. EGRIFTA [Suspect]
     Dates: start: 20111101, end: 20111101
  2. VIRAMUNE [Concomitant]
     Indication: LENTIVIRUS TEST POSITIVE
  3. METOPROLOL TARTRATE [Concomitant]
     Indication: HYPERTENSION
  4. EGRIFTA [Suspect]
     Indication: LIPODYSTROPHY ACQUIRED
     Route: 058
     Dates: start: 20110201, end: 20110501
  5. TRUVADA [Concomitant]
     Indication: LENTIVIRUS TEST POSITIVE
  6. PRAVASTATIN [Concomitant]
     Indication: BLOOD CHOLESTEROL INCREASED
  7. NORVASC [Concomitant]
     Indication: HYPERTENSION
  8. METFORMIN HCL [Concomitant]
     Indication: DIABETES MELLITUS

REACTIONS (1)
  - COLON CANCER STAGE IV [None]
